FAERS Safety Report 4614329-5 (Version None)
Quarter: 2005Q1

REPORT INFORMATION
  Report Type: 
  Country: None (occurrence: None)
  Receive Date: 20050315
  Receipt Date: 20050302
  Transmission Date: 20050727
  Serious: Yes (Other)
  Sender: FDA-Public Use
  Company Number: 2005042596

PATIENT
  Sex: 0

DRUGS (3)
  1. VERAPAMIL HYDROCHLORIDE [Suspect]
     Indication: ILL-DEFINED DISORDER
  2. ATENOLOL [Suspect]
     Indication: ILL-DEFINED DISORDER
  3. TELITHROMYCIN (TELITHROMYCIN) [Suspect]
     Indication: ILL-DEFINED DISORDER

REACTIONS (2)
  - CARDIAC ARREST [None]
  - DRUG INTERACTION [None]
